FAERS Safety Report 8119839 (Version 8)
Quarter: 2012Q4

REPORT INFORMATION
  Report Type: Report from Study
  Country: JP (occurrence: MY)
  Receive Date: 20110905
  Receipt Date: 20121015
  Transmission Date: 20130627
  Serious: Yes (Hospitalization)
  Sender: FDA-Public Use
  Company Number: MY-BRISTOL-MYERS SQUIBB COMPANY-16017352

PATIENT
  Age: 36 Year
  Sex: Male

DRUGS (4)
  1. ABILIFY TABS [Suspect]
     Indication: SCHIZOPHRENIA
     Route: 048
     Dates: start: 20110622, end: 20110818
  2. HALOPERIDOL [Concomitant]
     Dosage: Dose:5mg OM,10 mg ON 19-19Aug11 10mg IM once daily, 10mg oral 20-22Aug11, 10mg 15mg 29Aug11
     Dates: start: 20110819
  3. BENZHEXOL [Concomitant]
  4. LORAZEPAM [Concomitant]

REACTIONS (1)
  - Schizophrenia [Not Recovered/Not Resolved]
